FAERS Safety Report 5192710-6 (Version None)
Quarter: 2006Q4

REPORT INFORMATION
  Report Type: 
  Country: None (occurrence: None)
  Receive Date: 20061228
  Receipt Date: 20061219
  Transmission Date: 20070319
  Serious: Yes (Hospitalization)
  Sender: FDA-Public Use
  Company Number: PHRM2006FR03367

PATIENT
  Age: 64 Year
  Sex: Male

DRUGS (6)
  1. LERCAN [Concomitant]
     Route: 048
     Dates: start: 20050101
  2. OMACOR [Concomitant]
     Route: 048
     Dates: start: 20050101
  3. ASPIRIN [Suspect]
     Dosage: 75 MG, QD
     Route: 048
     Dates: start: 19990701
  4. CRESTOR [Suspect]
     Dosage: 20 MG/DAY
     Route: 048
     Dates: start: 19990701
  5. KERLONE [Concomitant]
     Route: 048
     Dates: start: 19990101
  6. NISISCO [Suspect]
     Route: 048
     Dates: start: 19990701

REACTIONS (1)
  - TONGUE OEDEMA [None]
